FAERS Safety Report 10144394 (Version 2)
Quarter: 2014Q3

REPORT INFORMATION
  Report Type: Spontaneous
  Country: FR (occurrence: FR)
  Receive Date: 20140430
  Receipt Date: 20140721
  Transmission Date: 20150326
  Serious: Yes (Death)
  Sender: FDA-Public Use
  Company Number: FR-US-EMD SERONO, INC.-7285034

PATIENT

DRUGS (1)
  1. REBIF [Suspect]
     Active Substance: INTERFERON BETA-1A
     Indication: MULTIPLE SCLEROSIS
     Route: 064
     Dates: start: 20110104

REACTIONS (3)
  - Brain malformation [Fatal]
  - Cerebral ventricle dilatation [Fatal]
  - Foetal exposure during pregnancy [Recovered/Resolved]
